FAERS Safety Report 9946135 (Version 1)
Quarter: 2014Q1

REPORT INFORMATION
  Report Type: Spontaneous
  Country: US (occurrence: US)
  Receive Date: 20140303
  Receipt Date: 20140303
  Transmission Date: 20141002
  Serious: No
  Sender: FDA-Public Use
  Company Number: US-AMGEN-USASP2013090639

PATIENT
  Age: 54 Year
  Sex: Female
  Weight: 66.21 kg

DRUGS (6)
  1. ENBREL [Suspect]
     Indication: PRODUCT USED FOR UNKNOWN INDICATION
     Dosage: 50 MG, QWK
     Route: 058
  2. MOBIC [Concomitant]
     Dosage: 15 MG, UNK
  3. LISINOPRIL HCTZ [Concomitant]
     Dosage: 20-12.5, UNK
  4. ALLOPURINOL [Concomitant]
     Dosage: 100 MG, UNK
  5. CYMBALTA [Concomitant]
     Dosage: 20 MG, UNK
  6. FOLIC ACID [Concomitant]
     Dosage: UNK

REACTIONS (1)
  - Drug ineffective [Unknown]
